FAERS Safety Report 7991801-1 (Version None)
Quarter: 2011Q4

REPORT INFORMATION
  Report Type: 
  Country: None (occurrence: None)
  Receive Date: 20111219
  Receipt Date: 20111213
  Transmission Date: 20120403
  Serious: Yes (Hospitalization)
  Sender: FDA-Public Use
  Company Number: US-B.I. PHARMACEUTICALS,INC./RIDGEFIELD-2011-BP-28102BP

PATIENT

DRUGS (1)
  1. PRADAXA [Suspect]

REACTIONS (3)
  - HAEMATURIA [None]
  - URINARY TRACT INFECTION [None]
  - NEPHROLITHIASIS [None]
